FAERS Safety Report 18377225 (Version 2)
Quarter: 2020Q4

REPORT INFORMATION
  Report Type: Spontaneous
  Country: US (occurrence: US)
  Receive Date: 20201013
  Receipt Date: 20201124
  Transmission Date: 20210114
  Serious: No
  Sender: FDA-Public Use
  Company Number: US-PFIZER INC-2020392947

PATIENT
  Age: 65 Year
  Sex: Male
  Weight: 67.12 kg

DRUGS (2)
  1. INLYTA [Concomitant]
     Active Substance: AXITINIB
     Dosage: UNK
  2. SUTENT [Suspect]
     Active Substance: SUNITINIB MALATE
     Indication: RENAL CANCER
     Dosage: 50 MG, CYCLIC (TAKE 1 CAPSULE, ORAL, 28 DAYS THEN OFF 14 DAYS)
     Route: 048
     Dates: start: 202009

REACTIONS (3)
  - Pain [Unknown]
  - Nausea [Not Recovered/Not Resolved]
  - Vomiting [Not Recovered/Not Resolved]
